FAERS Safety Report 7531408-3 (Version None)
Quarter: 2011Q2

REPORT INFORMATION
  Report Type: 
  Country: None (occurrence: None)
  Receive Date: 20110608
  Receipt Date: 20110527
  Transmission Date: 20111010
  Serious: Yes (Other)
  Sender: FDA-Public Use
  Company Number: ES-ELI_LILLY_AND_COMPANY-ES201007005521

PATIENT
  Sex: Female
  Weight: 78 kg

DRUGS (15)
  1. NATECAL D [Concomitant]
     Indication: OSTEOPOROSIS
     Dosage: UNK, DAILY (1/D)
     Route: 048
  2. OMEPRAZOLE [Concomitant]
     Indication: PROPHYLAXIS
     Dosage: 20 DF, UNKNOWN
     Route: 065
     Dates: start: 20051003
  3. CORTICOSTEROIDS [Concomitant]
     Indication: RHEUMATOID ARTHRITIS
  4. IMMUNOSUPPRESSANTS [Concomitant]
     Indication: RHEUMATOID ARTHRITIS
  5. NOLOTIL [Concomitant]
     Dosage: UNK, AS NEEDED
     Route: 048
  6. ARTRINOVO [Concomitant]
     Indication: RHEUMATOID ARTHRITIS
     Dosage: 100 MG, DAILY (1/D)
     Route: 054
     Dates: start: 20051003
  7. CALCIUM CARBONATE [Concomitant]
     Indication: RHEUMATOID ARTHRITIS
     Dosage: 1500 MG, UNKNOWN
     Route: 065
     Dates: start: 20051003
  8. ZAMENE [Concomitant]
     Dosage: 7.5 MG, QD
     Dates: start: 20051003
  9. ALAPRIL [Concomitant]
     Indication: DEPRESSION
     Dosage: UNK, DAILY (1/D)
     Route: 048
  10. TARKA [Concomitant]
     Indication: HYPERTENSION
     Dosage: UNK, DAILY (1/D)
     Route: 048
  11. OSEOTOTAL [Concomitant]
     Indication: OSTEOPOROSIS
     Route: 048
  12. ARAVA [Concomitant]
     Indication: RHEUMATOID ARTHRITIS
     Dosage: 10 MG, DAILY (1/D)
     Route: 048
     Dates: start: 20051003
  13. ZAMENE [Concomitant]
     Indication: RHEUMATOID ARTHRITIS
     Dosage: 30 MG, DAILY (1/D)
     Route: 048
  14. COLECALCIFEROL [Concomitant]
     Indication: RHEUMATOID ARTHRITIS
     Dosage: 400 DF, UNKNOWN
     Route: 065
     Dates: start: 20051003
  15. FORTEO [Suspect]
     Indication: OSTEOPOROSIS
     Dosage: 20 UG, DAILY (1/D)
     Route: 058
     Dates: start: 20100423, end: 20100712

REACTIONS (6)
  - OEDEMA PERIPHERAL [None]
  - CELLULITIS [None]
  - OSTEONECROSIS OF JAW [None]
  - TOOTH INFECTION [None]
  - MALAISE [None]
  - POLYURIA [None]
